FAERS Safety Report 17327449 (Version 4)
Quarter: 2020Q3

REPORT INFORMATION
  Report Type: Report from Study
  Country: GB (occurrence: GB)
  Receive Date: 20200127
  Receipt Date: 20200903
  Transmission Date: 20201102
  Serious: Yes (Other)
  Sender: FDA-Public Use
  Company Number: GB-SAMSUNG BIOEPIS-SB-2019-38675

PATIENT
  Age: 35 Year
  Sex: Male

DRUGS (3)
  1. IMRALDI [Suspect]
     Active Substance: ADALIMUMAB
     Indication: CROHN^S DISEASE
     Dosage: LOADING DOSE
     Route: 058
     Dates: start: 20191203
  2. IMRALDI [Suspect]
     Active Substance: ADALIMUMAB
     Dosage: WEEK 2
     Route: 058
  3. IMRALDI [Suspect]
     Active Substance: ADALIMUMAB
     Route: 058

REACTIONS (7)
  - Abscess [Unknown]
  - Wound haemorrhage [Recovering/Resolving]
  - Sleep disorder [Unknown]
  - Drug ineffective [Unknown]
  - Fistula discharge [Unknown]
  - Abscess rupture [Recovered/Resolved]
  - Fistula [Unknown]
